FAERS Safety Report 21968260 (Version 2)
Quarter: 2023Q2

REPORT INFORMATION
  Report Type: Report from Study
  Country: EC (occurrence: EC)
  Receive Date: 20230208
  Receipt Date: 20230412
  Transmission Date: 20230721
  Serious: Yes (Other)
  Sender: FDA-Public Use
  Company Number: EC-BAYER-2023A012724

PATIENT
  Age: 49 Year
  Sex: Female

DRUGS (1)
  1. NEXAVAR [Suspect]
     Active Substance: SORAFENIB
     Indication: Thyroid cancer
     Dosage: 600 MG DAILY
     Dates: start: 20220401, end: 20221005

REACTIONS (3)
  - Liver disorder [None]
  - Toxicity to various agents [Unknown]
  - Blood calcitonin increased [None]
